FAERS Safety Report 9666259 (Version 1)
Quarter: 2013Q4

REPORT INFORMATION
  Report Type: Spontaneous
  Country: US (occurrence: US)
  Receive Date: 20131104
  Receipt Date: 20131104
  Transmission Date: 20140711
  Serious: No
  Sender: FDA-Public Use
  Company Number: US-BAYER-2013-131053

PATIENT
  Sex: Male

DRUGS (1)
  1. STIVARGA [Suspect]
     Indication: COLORECTAL CANCER METASTATIC
     Dosage: TOTAL DAILY DOSE 40 MG; 4 X40 MG
     Route: 048

REACTIONS (1)
  - Rash [None]
